FAERS Safety Report 17977071 (Version 2)
Quarter: 2020Q3

REPORT INFORMATION
  Report Type: Spontaneous
  Country: US (occurrence: US)
  Receive Date: 20200702
  Receipt Date: 20200910
  Transmission Date: 20201103
  Serious: No
  Sender: FDA-Public Use
  Company Number: US-BRISTOL-MYERS SQUIBB COMPANY-BMS-2020-052684

PATIENT
  Age: 79 Year
  Sex: Female
  Weight: 77 kg

DRUGS (5)
  1. YERVOY [Suspect]
     Active Substance: IPILIMUMAB
     Indication: HEPATIC NEOPLASM
     Dosage: UNK
     Route: 065
  2. OPDIVO [Suspect]
     Active Substance: NIVOLUMAB
     Indication: HEPATIC NEOPLASM
     Dosage: UNK
     Route: 065
     Dates: start: 202003
  3. OPDIVO [Suspect]
     Active Substance: NIVOLUMAB
     Indication: ABDOMINAL NEOPLASM
  4. YERVOY [Suspect]
     Active Substance: IPILIMUMAB
     Indication: ABDOMINAL NEOPLASM
  5. CALCIUM [Suspect]
     Active Substance: CALCIUM
     Indication: PRODUCT USED FOR UNKNOWN INDICATION
     Dosage: UNK
     Route: 065

REACTIONS (7)
  - Head discomfort [Unknown]
  - Constipation [Unknown]
  - Incorrect dose administered [Unknown]
  - Overdose [Unknown]
  - Muscular weakness [Unknown]
  - Gait disturbance [Unknown]
  - Weight decreased [Unknown]

NARRATIVE: CASE EVENT DATE: 202003
